FAERS Safety Report 15789076 (Version 1)
Quarter: 2019Q1

REPORT INFORMATION
  Report Type: Spontaneous
  Country: PR (occurrence: PR)
  Receive Date: 20190104
  Receipt Date: 20190104
  Transmission Date: 20190417
  Serious: No
  Sender: FDA-Public Use
  Company Number: PR-PFIZER INC-2019003822

PATIENT
  Age: 54 Year
  Sex: Female
  Weight: 90.7 kg

DRUGS (1)
  1. IBRANCE [Suspect]
     Active Substance: PALBOCICLIB
     Indication: BREAST CANCER FEMALE
     Dosage: 100 MG, DAILY
     Route: 048
     Dates: start: 20181026

REACTIONS (2)
  - Haemoglobin decreased [Unknown]
  - White blood cell count decreased [Unknown]
